FAERS Safety Report 17154626 (Version 2)
Quarter: 2020Q1

REPORT INFORMATION
  Report Type: Report from Study
  Country: US (occurrence: US)
  Receive Date: 20191214
  Receipt Date: 20200224
  Transmission Date: 20200409
  Serious: Yes (Hospitalization)
  Sender: FDA-Public Use
  Company Number: US-ROCHE-2495125

PATIENT
  Age: 58 Year
  Sex: Female
  Weight: 96.4 kg

DRUGS (3)
  1. VENETOCLAX. [Suspect]
     Active Substance: VENETOCLAX
     Indication: CHRONIC LYMPHOCYTIC LEUKAEMIA
     Dosage: ON 17/NOV/2019, CYCLE 5 DAY 1
     Route: 048
     Dates: start: 20190729
  2. OBINUTUZUMAB. [Suspect]
     Active Substance: OBINUTUZUMAB
     Indication: CHRONIC LYMPHOCYTIC LEUKAEMIA
     Dosage: ON 18/NOV/2019, CYCLE 5 DAY 1
     Route: 042
     Dates: start: 20190729
  3. IBRUTINIB [Suspect]
     Active Substance: IBRUTINIB
     Indication: CHRONIC LYMPHOCYTIC LEUKAEMIA
     Dosage: ON 17/NOV/2019, CYCLE 5 DAY 1
     Route: 048
     Dates: start: 20190729

REACTIONS (3)
  - Pharyngitis [Recovering/Resolving]
  - Neutrophil count decreased [Recovering/Resolving]
  - Otitis media [Recovering/Resolving]

NARRATIVE: CASE EVENT DATE: 20191118
